FAERS Safety Report 16981331 (Version 2)
Quarter: 2020Q1

REPORT INFORMATION
  Report Type: Report from Study
  Country: None (occurrence: US)
  Receive Date: 20191031
  Receipt Date: 20200330
  Transmission Date: 20200409
  Serious: Yes (Other)
  Sender: FDA-Public Use
  Company Number: US-ABBVIE-19K-163-2978580-00

PATIENT
  Age: 50 Year
  Sex: Female

DRUGS (1)
  1. HUMIRA [Suspect]
     Active Substance: ADALIMUMAB
     Indication: HIDRADENITIS
     Dosage: CITRATE FREE
     Route: 058

REACTIONS (8)
  - Rheumatoid arthritis [Unknown]
  - Furuncle [Unknown]
  - Skin discharge [Not Recovered/Not Resolved]
  - Dermal cyst [Unknown]
  - Glucose tolerance impaired [Unknown]
  - Benign bone neoplasm [Recovering/Resolving]
  - Exostosis [Recovering/Resolving]
  - Therapeutic response shortened [Unknown]

NARRATIVE: CASE EVENT DATE: 20191119
